FAERS Safety Report 7515553-4 (Version None)
Quarter: 2011Q2

REPORT INFORMATION
  Report Type: 
  Country: None (occurrence: None)
  Receive Date: 20110601
  Receipt Date: 20100712
  Transmission Date: 20111010
  Serious: Yes (Other)
  Sender: FDA-Public Use
  Company Number: US-PFIZER INC-2010086937

PATIENT
  Sex: Female

DRUGS (4)
  1. LEVOXYL [Suspect]
     Dosage: UNK
  2. NEURONTIN [Suspect]
     Dosage: UNK
  3. CHANTIX [Suspect]
     Dosage: UNK
     Dates: start: 20100501, end: 20100101
  4. KLONOPIN [Suspect]
     Dosage: UNK

REACTIONS (4)
  - MALAISE [None]
  - ABDOMINAL PAIN UPPER [None]
  - BACK PAIN [None]
  - PLATELET COUNT DECREASED [None]
